FAERS Safety Report 5247922-X (Version None)
Quarter: 2007Q1

REPORT INFORMATION
  Report Type: 
  Country: None (occurrence: None)
  Receive Date: 20070226
  Receipt Date: 20070226
  Transmission Date: 20070707
  Serious: Yes (Hospitalization, Disabling, Other)
  Sender: FDA-Public Use
  Company Number: None

PATIENT
  Age: 32 Year
  Sex: Female
  Weight: 56.6996 kg

DRUGS (3)
  1. VIOXX [Suspect]
     Indication: ARTHRALGIA
     Dosage: ONCE DAILY
  2. VIOXX [Suspect]
     Indication: RHEUMATOID ARTHRITIS
     Dosage: ONCE DAILY
  3. . [Concomitant]

REACTIONS (7)
  - CATHETERISATION CARDIAC [None]
  - DYSPNOEA [None]
  - ERYTHEMA [None]
  - PRURITUS [None]
  - SKIN DISORDER [None]
  - THROMBOSIS [None]
  - URTICARIA [None]
